FAERS Safety Report 8144749-6 (Version None)
Quarter: 2012Q1

REPORT INFORMATION
  Report Type: 
  Country: None (occurrence: None)
  Receive Date: 20120217
  Receipt Date: 20120211
  Transmission Date: 20120608
  Serious: Yes (Hospitalization)
  Sender: FDA-Public Use
  Company Number: US-BAYER-2011-070118

PATIENT
  Age: 47 Year
  Sex: Female
  Weight: 79.365 kg

DRUGS (7)
  1. FLAXSEED OIL [Concomitant]
     Dosage: UNK
     Dates: start: 20050101
  2. EVENING PRIMROSE OIL [Concomitant]
     Dosage: UNK
     Dates: start: 19930101, end: 20070101
  3. SERTRALINE HYDROCHLORIDE [Concomitant]
     Dosage: UNK
  4. OMEPRAZOLE [Concomitant]
     Dosage: UNK
  5. LOVAZA [Concomitant]
     Dosage: UNK
     Dates: start: 20050101
  6. YAZ [Suspect]
     Indication: PREMENSTRUAL SYNDROME
     Dosage: UNK
     Route: 048
     Dates: start: 20070101
  7. OXYBUTYNIN [Concomitant]
     Dosage: UNK

REACTIONS (10)
  - EMOTIONAL DISTRESS [None]
  - ANXIETY [None]
  - WEIGHT LOSS POOR [None]
  - THROMBOSIS [None]
  - EXERCISE TOLERANCE DECREASED [None]
  - PAIN [None]
  - PULMONARY THROMBOSIS [None]
  - FEAR [None]
  - PSYCHOLOGICAL TRAUMA [None]
  - INJURY [None]
